FAERS Safety Report 7916592-1 (Version None)
Quarter: 2011Q4

REPORT INFORMATION
  Report Type: 
  Country: None (occurrence: None)
  Receive Date: 20111114
  Receipt Date: 20111027
  Transmission Date: 20120403
  Serious: Yes (Death, Congenital Anomaly)
  Sender: FDA-Public Use
  Company Number: CRC-11-272

PATIENT
  Age: 1 Day
  Sex: Male
  Weight: 3.593 kg

DRUGS (3)
  1. METHYLDOPA [Concomitant]
  2. ALLOPURINOL [Suspect]
     Indication: NEPHROLITHIASIS
     Dosage: 300 MG DAILY; ORAL
     Route: 048
  3. MULTI-VITAMINS [Concomitant]

REACTIONS (11)
  - CLEFT LIP AND PALATE [None]
  - MICROTIA [None]
  - CONGENITAL CENTRAL NERVOUS SYSTEM ANOMALY [None]
  - PULMONARY APLASIA [None]
  - EXTERNAL AUDITORY CANAL ATRESIA [None]
  - OPTIC NERVE HYPOPLASIA [None]
  - MICROPHTHALMOS [None]
  - MATERNAL DRUGS AFFECTING FOETUS [None]
  - MICROGNATHIA [None]
  - CONGENITAL DIAPHRAGMATIC HERNIA [None]
  - RENAL APLASIA [None]
